FAERS Safety Report 7513599-3 (Version None)
Quarter: 2011Q2

REPORT INFORMATION
  Report Type: 
  Country: None (occurrence: None)
  Receive Date: 20110531
  Receipt Date: 20110519
  Transmission Date: 20111010
  Serious: Yes (Disabling, Other)
  Sender: FDA-Public Use
  Company Number: US-ASTRAZENECA-2011SE30877

PATIENT
  Age: 61 Year
  Sex: Female

DRUGS (4)
  1. SEROQUEL [Suspect]
     Dosage: 100 MG AM AND 200 MG PM
     Route: 048
  2. SEROQUEL [Suspect]
     Dosage: 100 MG AM AND 200 MG PM
     Route: 048
  3. SEROQUEL [Suspect]
     Indication: OBSESSIVE-COMPULSIVE DISORDER
     Route: 048
     Dates: start: 20060101
  4. SEROQUEL [Suspect]
     Indication: DEPRESSION
     Route: 048
     Dates: start: 20060101

REACTIONS (8)
  - WEIGHT BEARING DIFFICULTY [None]
  - BLINDNESS [None]
  - ABASIA [None]
  - OVERWEIGHT [None]
  - FALL [None]
  - TIC [None]
  - SPEECH DISORDER [None]
  - LOWER LIMB FRACTURE [None]
